FAERS Safety Report 5115690-8 (Version None)
Quarter: 2006Q3

REPORT INFORMATION
  Report Type: 
  Country: None (occurrence: None)
  Receive Date: 20060926
  Receipt Date: 20060926
  Transmission Date: 20061208
  Serious: Yes (Other)
  Sender: FDA-Public Use
  Company Number: None

PATIENT
  Age: 80 Year
  Sex: Male
  Weight: 73.9 kg

DRUGS (6)
  1. SIMVASTATIN [Suspect]
  2. TRAMADOL HCL [Concomitant]
  3. FUROSEMIDE [Concomitant]
  4. ALBUTEROL / IPRATROP [Concomitant]
  5. ALBUTEROL [Concomitant]
  6. FLUNISOLIDE [Concomitant]

REACTIONS (1)
  - TREMOR [None]
